FAERS Safety Report 10156219 (Version 1)
Quarter: 2014Q2

REPORT INFORMATION
  Report Type: Spontaneous
  Country: FR (occurrence: FR)
  Receive Date: 20140507
  Receipt Date: 20140507
  Transmission Date: 20141212
  Serious: Yes (Death)
  Sender: FDA-Public Use
  Company Number: FR-ROCHE-1395982

PATIENT
  Age: 92 Year
  Sex: Male

DRUGS (4)
  1. RITUXIMAB [Suspect]
     Indication: B-CELL LYMPHOMA
     Route: 065
  2. DOXORUBICIN [Concomitant]
     Indication: B-CELL LYMPHOMA
     Route: 065
  3. VINCRISTINE [Concomitant]
     Indication: B-CELL LYMPHOMA
     Route: 065
  4. PREDNISONE [Concomitant]
     Indication: B-CELL LYMPHOMA
     Route: 065

REACTIONS (1)
  - Metastatic malignant melanoma [Fatal]
